FAERS Safety Report 9523442 (Version 1)
Quarter: 2013Q1

REPORT INFORMATION
  Report Type: Spontaneous
  Country: US (occurrence: None)
  Receive Date: 20130305
  Receipt Date: 20130305
  Transmission Date: 20140127
  Serious: Yes (Hospitalization)
  Sender: FDA-Public Use
  Company Number: 163-21880-12012696

PATIENT
  Age: 69 Year
  Sex: Male
  Weight: 86.64 kg

DRUGS (10)
  1. REVLIMID (LENALIDOMIDE) (25 MILLIGRAM, CAPSULES) [Suspect]
     Indication: PLASMA CELL MYELOMA
     Dosage: 25 MG, DAILY X 21 DAYS, PO?
     Route: 048
     Dates: start: 20111216, end: 20111226
  2. CALCIUM (CALCIUM) (UNKNOWN) [Concomitant]
  3. DEXAMETHASONE (DEXAMETHASONE) (PILL) [Concomitant]
  4. DIOVAN (VALSARTAN) (UNKNOWN) [Concomitant]
  5. LANTUS (INSULIN GLARGINE) (UNKNOWN) [Concomitant]
  6. LEVOTHYROXIN (LEVOTHYROXINE SODIUM) (UNKNOWN) [Concomitant]
  7. MAALOX (MAALOX) (UNKNOWN)? [Concomitant]
  8. METOPROLOL (METOPROLOL) (UNKNOWN) [Concomitant]
  9. PANTOPRAZOLE [Concomitant]
  10. STOOLSOFTENER (DOCUSATE SODIUM) (UNKNOWN) [Concomitant]

REACTIONS (1)
  - Pneumonia [None]
